FAERS Safety Report 8528312-0 (Version None)
Quarter: 2012Q3

REPORT INFORMATION
  Report Type: 
  Country: None (occurrence: None)
  Receive Date: 20120722
  Receipt Date: 20120705
  Transmission Date: 20120928
  Serious: No
  Sender: FDA-Public Use
  Company Number: US-009507513-1207USA002283

PATIENT

DRUGS (2)
  1. EMEND [Suspect]
     Indication: PROPHYLAXIS OF NAUSEA AND VOMITING
     Dosage: UNK
     Route: 041
  2. ADRIAMYCIN PFS [Concomitant]

REACTIONS (3)
  - INFUSION SITE RASH [None]
  - INFUSION SITE PAIN [None]
  - PAIN IN EXTREMITY [None]
